FAERS Safety Report 9376079 (Version 1)
Quarter: 2013Q3

REPORT INFORMATION
  Report Type: Spontaneous
  Country: AU (occurrence: AU)
  Receive Date: 20130701
  Receipt Date: 20130701
  Transmission Date: 20140515
  Serious: Yes (Hospitalization)
  Sender: FDA-Public Use
  Company Number: AU-009507513-1306AUS012660

PATIENT
  Age: 77 Year
  Sex: Female

DRUGS (16)
  1. SIMVASTATIN [Suspect]
     Dosage: 20 MG DAILY
     Route: 048
  2. SITAGLIPTIN PHOSPHATE [Suspect]
     Dosage: 50 G DAILY
     Route: 048
     Dates: end: 20130409
  3. PILOCARPINE [Suspect]
     Route: 047
  4. FUROSEMIDE [Suspect]
     Dosage: 120 MG DAILY
     Route: 048
     Dates: end: 20130409
  5. ASPIRIN [Suspect]
     Dosage: 100 MG DAILY
     Dates: end: 20130409
  6. COUMADIN [Suspect]
     Dosage: 6 MG DAILY
     Dates: end: 20130409
  7. FERRO F TABLETS [Suspect]
     Dosage: UNK
     Dates: end: 20130406
  8. FLOXACILLIN SODIUM [Suspect]
     Dosage: 1000 MG DAILY
     Route: 042
     Dates: start: 20130402, end: 20130409
  9. GLICLAZIDE [Suspect]
     Dosage: 30 MG DAILY
     Dates: end: 20130409
  10. LATANOPROST [Suspect]
  11. METFORMIN HYDROCHLORIDE [Suspect]
     Dosage: 1 G DAILY
     Dates: end: 20130409
  12. OXYCODONE HYDROCHLORIDE [Suspect]
     Dosage: 20 MG DAILY
     Dates: start: 20130407
  13. ACETAMINOPHEN [Suspect]
     Dosage: 4 G DAILY
  14. RAMIPRIL [Suspect]
     Dosage: 2.5 G DAILY
     Dates: end: 20130409
  15. SPIRONOLACTONE [Suspect]
     Dosage: 12.5 MG DAILY
     Dates: end: 20130409
  16. TRIAMCINOLONE ACETONIDE [Suspect]

REACTIONS (4)
  - Diabetic ulcer [Not Recovered/Not Resolved]
  - Rectal haemorrhage [Not Recovered/Not Resolved]
  - International normalised ratio increased [Not Recovered/Not Resolved]
  - Calciphylaxis [Not Recovered/Not Resolved]
